FAERS Safety Report 9830263 (Version 4)
Quarter: 2014Q2

REPORT INFORMATION
  Report Type: Spontaneous
  Country: JP (occurrence: JP)
  Receive Date: 20140120
  Receipt Date: 20140515
  Transmission Date: 20141212
  Serious: Yes (Other)
  Sender: FDA-Public Use
  Company Number: JP-LUNDBECK-DKLU1094152

PATIENT
  Age: 5 Year
  Sex: Female
  Weight: 11 kg

DRUGS (22)
  1. MYSTAN [Suspect]
     Indication: EPILEPSY
     Route: 048
  2. MYSTAN [Suspect]
     Route: 048
     Dates: start: 20110901, end: 20111013
  3. MYSTAN [Suspect]
     Route: 048
     Dates: start: 20111014, end: 20120222
  4. MYSTAN [Suspect]
     Route: 048
     Dates: start: 20120223
  5. MYSTAN [Suspect]
     Route: 048
     Dates: start: 20111213, end: 20120611
  6. VELCADE [Suspect]
     Indication: AUTOIMMUNE PANCYTOPENIA
     Route: 050
     Dates: start: 20111207
  7. ZONISAMIDE [Concomitant]
     Indication: EPILEPSY
  8. LEVETIRACETAM [Concomitant]
     Indication: EPILEPSY
  9. CORTRIL [Concomitant]
     Indication: PRODUCT USED FOR UNKNOWN INDICATION
  10. SOLUTIONS FOR PARENTERAL NUTRITION [Concomitant]
     Indication: PRODUCT USED FOR UNKNOWN INDICATION
  11. GABAPENTIN [Concomitant]
     Indication: PRODUCT USED FOR UNKNOWN INDICATION
  12. BAKTAR [Concomitant]
     Indication: PRODUCT USED FOR UNKNOWN INDICATION
  13. ANTIBIOTICS-RESISTANT LACTIC ACID BACTERIAE [Concomitant]
     Indication: PRODUCT USED FOR UNKNOWN INDICATION
  14. SAWACILLIN [Concomitant]
     Indication: PRODUCT USED FOR UNKNOWN INDICATION
  15. IMURAN [Concomitant]
     Indication: PRODUCT USED FOR UNKNOWN INDICATION
  16. DEFERASIROX [Concomitant]
     Indication: PRODUCT USED FOR UNKNOWN INDICATION
  17. CELLCEPT [Concomitant]
     Indication: PRODUCT USED FOR UNKNOWN INDICATION
  18. ALFAROL [Concomitant]
     Indication: PRODUCT USED FOR UNKNOWN INDICATION
  19. SOLDEM 3A [Concomitant]
     Indication: PRODUCT USED FOR UNKNOWN INDICATION
  20. HEPARIN SODIUM [Concomitant]
     Indication: PRODUCT USED FOR UNKNOWN INDICATION
  21. ONDANSETRON HYDROCHLORIDE [Concomitant]
     Indication: PRODUCT USED FOR UNKNOWN INDICATION
  22. SODIUM CHLORIDE [Concomitant]
     Indication: PRODUCT USED FOR UNKNOWN INDICATION

REACTIONS (3)
  - Respiratory rate decreased [Unknown]
  - Drug level increased [Unknown]
  - Drug interaction [Unknown]
